FAERS Safety Report 15619962 (Version 2)
Quarter: 2018Q4

REPORT INFORMATION
  Report Type: Report from Study
  Country: CN (occurrence: CN)
  Receive Date: 20181115
  Receipt Date: 20181122
  Transmission Date: 20190205
  Serious: Yes (Hospitalization)
  Sender: FDA-Public Use
  Company Number: CN-AMGEN-CHNCT2018160129

PATIENT
  Age: 63 Year
  Sex: Male

DRUGS (14)
  1. ENOXAPARIN [Concomitant]
     Active Substance: ENOXAPARIN
     Indication: ANTICOAGULANT THERAPY
     Dosage: 4000 AXAIU, 3 TIMES/WK
     Route: 042
     Dates: start: 20170802, end: 20181102
  2. VALSARTAN. [Concomitant]
     Active Substance: VALSARTAN
     Indication: HYPERTENSION
     Dosage: 80 MG, QD
     Route: 048
     Dates: start: 20180622
  3. CINACALCET HCL [Suspect]
     Active Substance: CINACALCET HYDROCHLORIDE
     Indication: HYPERPARATHYROIDISM SECONDARY
     Dosage: 50 MG, UNK
     Route: 048
     Dates: start: 20180824
  4. TRIMETAZIDINE HYDROCHLORIDE [Concomitant]
     Active Substance: TRIMETAZIDINE DIHYDROCHLORIDE
     Indication: NUTRITIONAL SUPPLEMENTATION
     Dosage: UNK
     Dates: start: 20170502
  5. SULBACTAM SODIUM [Concomitant]
     Active Substance: SULBACTAM SODIUM
     Indication: INFECTION
     Dosage: 3 G, Q12H IVGTT
     Dates: start: 20181031
  6. FUROSEMIDE. [Concomitant]
     Active Substance: FUROSEMIDE
     Indication: POLYURIA
     Dosage: 20 MG, TID
     Route: 048
     Dates: start: 20181031
  7. METHOXAMINE [Concomitant]
     Active Substance: METHOXAMINE
     Indication: PRODUCTIVE COUGH
     Dosage: 2 DF (2 PILLS), TID
     Route: 048
     Dates: start: 20181031
  8. CEFUROXIME AXETIL. [Concomitant]
     Active Substance: CEFUROXIME AXETIL
     Indication: INFLAMMATION
     Dosage: UNK
     Route: 048
  9. POLYSACCHARIDE IRON [Concomitant]
     Indication: ANAEMIA
     Dosage: 0.15 G, QD
     Route: 048
     Dates: start: 20160307
  10. SODIUM BICARBONATE. [Concomitant]
     Active Substance: SODIUM BICARBONATE
     Indication: METABOLIC ACIDOSIS
     Dosage: 1.0 G, TID
     Route: 048
     Dates: start: 20150520
  11. NIFEDIPINE. [Concomitant]
     Active Substance: NIFEDIPINE
     Indication: HYPERTENSION
     Dosage: 30 MG
     Dates: start: 20170925
  12. CALCIUM CARBONATE. [Concomitant]
     Active Substance: CALCIUM CARBONATE
     Indication: MINERAL SUPPLEMENTATION
     Dosage: 500 MG, QD
     Route: 048
     Dates: start: 20160330
  13. METHOXAMINE [Concomitant]
     Active Substance: METHOXAMINE
     Indication: ASTHMA
  14. NIFEDIPINE. [Concomitant]
     Active Substance: NIFEDIPINE
     Dosage: 30 MG, QD
     Route: 048
     Dates: start: 20181031

REACTIONS (1)
  - Pneumonia [Recovered/Resolved]
